FAERS Safety Report 11133716 (Version 2)
Quarter: 2017Q2

REPORT INFORMATION
  Report Type: Spontaneous
  Country: US (occurrence: US)
  Receive Date: 20150524
  Receipt Date: 20170407
  Transmission Date: 20170829
  Serious: No
  Sender: FDA-Public Use
  Company Number: US-JNJFOC-20150515051

PATIENT
  Age: 14 Year
  Sex: Male

DRUGS (5)
  1. RISPERDAL [Suspect]
     Active Substance: RISPERIDONE
     Indication: AUTISM SPECTRUM DISORDER
     Dosage: VARYING DOSE 0.25MG, 0.5 MG AND 1 MG
     Route: 048
     Dates: start: 200805, end: 201111
  2. RISPERIDONE. [Suspect]
     Active Substance: RISPERIDONE
     Indication: PRODUCT USED FOR UNKNOWN INDICATION
     Route: 065
  3. RISPERDAL [Suspect]
     Active Substance: RISPERIDONE
     Indication: ANXIETY
     Dosage: VARYING DOSE 0.25MG, 0.5 MG AND 1 MG
     Route: 048
     Dates: start: 200805, end: 201111
  4. RISPERDIONE [Suspect]
     Active Substance: RISPERIDONE
     Indication: PRODUCT USED FOR UNKNOWN INDICATION
     Route: 048
  5. RISPERDAL [Suspect]
     Active Substance: RISPERIDONE
     Indication: ATTENTION DEFICIT/HYPERACTIVITY DISORDER
     Dosage: VARYING DOSE 0.25MG, 0.5 MG AND 1 MG
     Route: 048
     Dates: start: 200805, end: 201111

REACTIONS (6)
  - Abnormal weight gain [Unknown]
  - Feeling jittery [Unknown]
  - Gynaecomastia [Unknown]
  - Dyskinesia [Unknown]
  - Hyperprolactinaemia [Unknown]
  - Tremor [Unknown]

NARRATIVE: CASE EVENT DATE: 2008
